FAERS Safety Report 5014679-7 (Version None)
Quarter: 2006Q2

REPORT INFORMATION
  Report Type: 
  Country: None (occurrence: None)
  Receive Date: 20060531
  Receipt Date: 20060126
  Transmission Date: 20061013
  Serious: Yes (Other)
  Sender: FDA-Public Use
  Company Number: GB-SANOFI-SYNTHELABO-A01200603714

PATIENT
  Sex: Female
  Weight: 78.8 kg

DRUGS (4)
  1. FLUOROURACIL [Concomitant]
     Dosage: UNK
     Route: 042
  2. ELOXATIN [Suspect]
     Dosage: UNK
     Route: 042
     Dates: start: 20060126, end: 20060126
  3. DOLASETRON [Concomitant]
     Route: 065
  4. DEXAMETHASONE TAB [Concomitant]
     Route: 065

REACTIONS (4)
  - EYE DISORDER [None]
  - EYE SWELLING [None]
  - EYELID OEDEMA [None]
  - LARYNGOSPASM [None]
